FAERS Safety Report 11402329 (Version 2)
Quarter: 2015Q3

REPORT INFORMATION
  Report Type: Spontaneous
  Country: JP (occurrence: JP)
  Receive Date: 20150821
  Receipt Date: 20150918
  Transmission Date: 20151125
  Serious: Yes (Other)
  Sender: FDA-Public Use
  Company Number: JP-ASTRAZENECA-2015SE80546

PATIENT
  Age: 81 Year
  Sex: Female

DRUGS (10)
  1. AMINOVACT [Concomitant]
     Route: 048
  2. MAGNESIUM OXIDE. [Concomitant]
     Active Substance: MAGNESIUM OXIDE
     Route: 048
  3. MEVALOTIN [Concomitant]
     Active Substance: PRAVASTATIN SODIUM
     Route: 048
  4. NEUROTROPIN [Concomitant]
     Active Substance: NEUROTROPIN
  5. SENNOSIDE [Concomitant]
     Active Substance: SENNOSIDES
  6. SEROQUEL [Suspect]
     Active Substance: QUETIAPINE FUMARATE
     Indication: PRODUCT USED FOR UNKNOWN INDICATION
     Route: 048
  7. URSO [Concomitant]
     Active Substance: URSODIOL
     Route: 048
  8. LACTULOSE. [Concomitant]
     Active Substance: LACTULOSE
     Route: 048
  9. AMINOLEBAN EN [Concomitant]
     Active Substance: UNSPECIFIED INGREDIENT
  10. SELBEX [Concomitant]
     Active Substance: TEPRENONE
     Route: 048

REACTIONS (1)
  - Coma hepatic [Unknown]
